FAERS Safety Report 20571575 (Version 7)
Quarter: 2022Q3

REPORT INFORMATION
  Report Type: Spontaneous
  Country: US (occurrence: US)
  Receive Date: 20220309
  Receipt Date: 20220826
  Transmission Date: 20221027
  Serious: No
  Sender: FDA-Public Use
  Company Number: US-GLAXOSMITHKLINE-US2022042366

PATIENT
  Age: 56 Year
  Sex: Female

DRUGS (3)
  1. ZEJULA [Suspect]
     Active Substance: NIRAPARIB
     Indication: Ovarian cancer
     Dosage: 200 MG, QD (QPM)
     Route: 048
     Dates: start: 20220228
  2. ZEJULA [Suspect]
     Active Substance: NIRAPARIB
     Dosage: 200 MG, QD (RESUMED ON AN UNKNOWN DATE)
  3. ZEJULA [Suspect]
     Active Substance: NIRAPARIB
     Dosage: 100 MG, QD
     Dates: start: 202206

REACTIONS (13)
  - Nausea [Recovering/Resolving]
  - Vomiting [Recovering/Resolving]
  - Constipation [Not Recovered/Not Resolved]
  - Haemoglobin decreased [Not Recovered/Not Resolved]
  - Fatigue [Recovering/Resolving]
  - Heart rate increased [Recovering/Resolving]
  - Dyspnoea [Recovering/Resolving]
  - White blood cell count decreased [Recovering/Resolving]
  - Peripheral swelling [Recovering/Resolving]
  - Anaemia [Not Recovered/Not Resolved]
  - Weight increased [Not Recovered/Not Resolved]
  - Musculoskeletal stiffness [Not Recovered/Not Resolved]
  - Off label use [Recovering/Resolving]

NARRATIVE: CASE EVENT DATE: 20220228
